FAERS Safety Report 21860162 (Version 1)
Quarter: 2023Q1

REPORT INFORMATION
  Report Type: Spontaneous
  Country: CA (occurrence: CA)
  Receive Date: 20230113
  Receipt Date: 20230113
  Transmission Date: 20230418
  Serious: Yes (Death, Other)
  Sender: FDA-Public Use
  Company Number: CA-SAMSUNG BIOEPIS-SB-2023-00481

PATIENT
  Age: 73 Year
  Sex: Female
  Weight: 82 kg

DRUGS (2)
  1. INFLIXIMAB [Suspect]
     Active Substance: INFLIXIMAB
     Indication: Colitis ulcerative
     Route: 042
  2. PREDNISONE [Concomitant]
     Active Substance: PREDNISONE
     Indication: Asthma
     Route: 065

REACTIONS (8)
  - Asthma [Fatal]
  - Carpal tunnel syndrome [Fatal]
  - Condition aggravated [Fatal]
  - Diarrhoea [Fatal]
  - Incision site inflammation [Fatal]
  - Weight increased [Fatal]
  - Intentional product use issue [Fatal]
  - Off label use [Fatal]
